FAERS Safety Report 12629170 (Version 2)
Quarter: 2016Q3

REPORT INFORMATION
  Report Type: Spontaneous
  Country: US (occurrence: US)
  Receive Date: 20160808
  Receipt Date: 20160926
  Transmission Date: 20161109
  Serious: No
  Sender: FDA-Public Use
  Company Number: US-APOTEX-2016AP009668

PATIENT
  Sex: Female

DRUGS (2)
  1. CLARISPRAY NASAL ALLERGY [Suspect]
     Active Substance: FLUTICASONE PROPIONATE
     Indication: HYPERSENSITIVITY
     Dosage: 2 SPRAYS EACH NOSTRIL ONCE DAILY
     Route: 065
  2. CLARISPRAY NASAL ALLERGY [Suspect]
     Active Substance: FLUTICASONE PROPIONATE
     Indication: LACRIMATION INCREASED

REACTIONS (5)
  - Drug ineffective [Unknown]
  - Condition aggravated [Unknown]
  - Product substitution issue [Unknown]
  - Lacrimation increased [Unknown]
  - Sneezing [Unknown]
